FAERS Safety Report 6171604-3 (Version None)
Quarter: 2009Q2

REPORT INFORMATION
  Report Type: 
  Country: None (occurrence: None)
  Receive Date: 20090429
  Receipt Date: 20090422
  Transmission Date: 20091009
  Serious: Yes (Death)
  Sender: FDA-Public Use
  Company Number: ES-ELI_LILLY_AND_COMPANY-ES200903002192

PATIENT
  Age: 58 Year
  Sex: Male
  Weight: 85 kg

DRUGS (32)
  1. XIGRIS [Suspect]
     Indication: SEPSIS
     Dosage: 24 UG/KG/H, 96 HRS
     Route: 042
     Dates: start: 20090216, end: 20090220
  2. OCTAPLEX [Concomitant]
     Indication: COAGULATION FACTOR
     Dosage: UNK, UNKNOWN
     Route: 065
     Dates: start: 20090201
  3. INSULINE ACTRAPID /00646001/ [Concomitant]
     Indication: HYPERGLYCAEMIA
     Dosage: UNK, UNKNOWN
     Route: 065
     Dates: start: 20090201
  4. MORPHINE [Concomitant]
     Indication: ANALGESIC THERAPY
     Dosage: UNK, UNKNOWN
     Route: 065
     Dates: start: 20090201
  5. MIDAZOLAM HCL [Concomitant]
     Indication: SEDATION
     Dosage: UNK, UNKNOWN
     Route: 065
     Dates: start: 20090201
  6. CLORAZEPATE DIPOTASSIUM [Concomitant]
     Indication: SEDATION
     Dosage: UNK, UNKNOWN
     Route: 065
     Dates: start: 20090201
  7. PROPOFOL [Concomitant]
     Indication: NEUROMUSCULAR BLOCKADE
     Dosage: UNK, UNKNOWN
     Route: 065
     Dates: start: 20090201
  8. SUCCINILCOLINA [Concomitant]
     Indication: ANTASTHMATIC DRUG LEVEL
     Dosage: UNK, UNKNOWN
     Route: 065
     Dates: start: 20090201
  9. CISATRACURIUM [Concomitant]
     Indication: ANTASTHMATIC DRUG LEVEL
     Dosage: UNK, UNKNOWN
     Route: 065
     Dates: start: 20090201
  10. SPIRIVA [Concomitant]
     Indication: SEPTIC SHOCK
     Dosage: UNK, UNKNOWN
     Route: 065
     Dates: start: 20090201
  11. HYDROCORTISONE [Concomitant]
     Indication: PROPHYLAXIS
     Dosage: UNK, UNKNOWN
     Route: 065
     Dates: start: 20090201
  12. PANTOPRAZOL [Concomitant]
     Indication: STRESS
     Dosage: UNK, UNKNOWN
     Route: 065
     Dates: start: 20090201
  13. PARACETAMOL [Concomitant]
     Indication: PYREXIA
     Dosage: UNK, UNKNOWN
     Route: 065
     Dates: start: 20090201
  14. PIPERACILLIN SODIUM AND TAZOBACTAM SODIUM [Concomitant]
     Indication: ANTIBIOTIC THERAPY
     Dosage: UNK, UNKNOWN
     Route: 065
     Dates: start: 20090201
  15. CIPROFLOXACIN [Concomitant]
     Indication: ANTIBIOTIC THERAPY
     Dosage: UNK, UNKNOWN
     Route: 065
     Dates: start: 20090201
  16. FLUCONAZOLE [Concomitant]
     Indication: PROPHYLAXIS
     Dosage: UNK, UNKNOWN
     Route: 065
     Dates: start: 20090201
  17. DALTEPARIN SODIUM [Concomitant]
     Indication: CARDIAC DISORDER
     Dosage: 5000 IU, DAILY (1/D)
     Route: 065
     Dates: start: 20090201
  18. AMIODARONE [Concomitant]
     Dosage: UNK, UNKNOWN
     Route: 065
     Dates: start: 20000201
  19. DIGOXIN [Concomitant]
     Dosage: UNK, UNKNOWN
     Route: 065
     Dates: start: 20090201
  20. FOLIC ACID [Concomitant]
     Indication: SUPPLEMENTATION THERAPY
     Dosage: UNK, UNKNOWN
     Route: 065
     Dates: start: 20090201
  21. VITAMIN B1 TAB [Concomitant]
     Indication: SUPPLEMENTATION THERAPY
     Dosage: UNK, UNKNOWN
     Route: 065
     Dates: start: 20090201
  22. VITAMIN B6 [Concomitant]
     Indication: SUPPLEMENTATION THERAPY
     Dosage: UNK, UNKNOWN
     Route: 065
     Dates: start: 20090201
  23. VITAMIN B-12 [Concomitant]
     Indication: SUPPLEMENTATION THERAPY
     Dosage: UNK, UNKNOWN
     Route: 065
     Dates: start: 20090201
  24. CLINIMIX                           /01793401/ [Concomitant]
     Indication: PARENTERAL NUTRITION
     Dosage: UNK, UNKNOWN
     Route: 065
     Dates: start: 20090201
  25. CLINOLEIC [Concomitant]
     Indication: PARENTERAL NUTRITION
     Dosage: UNK, UNKNOWN
     Route: 065
     Dates: start: 20090201
  26. NORADRENALIN                       /00127501/ [Concomitant]
     Indication: BLOOD ANTIDIURETIC HORMONE
     Dosage: UNK, UNKNOWN
     Route: 065
     Dates: start: 20090201
  27. DOBUTAMIN [Concomitant]
     Indication: BLOOD ANTIDIURETIC HORMONE
     Dosage: UNK, UNKNOWN
     Route: 065
     Dates: start: 20090201
  28. FUROSEMIDE [Concomitant]
     Indication: DIURETIC THERAPY
     Dosage: UNK, UNKNOWN
     Route: 065
     Dates: start: 20090201
  29. SOLUDACTONE [Concomitant]
     Indication: DIURETIC THERAPY
     Dosage: UNK, UNKNOWN
     Route: 065
     Dates: start: 20090201
  30. ESMOLOL HCL [Concomitant]
     Indication: ARRHYTHMIA
     Dosage: UNK, UNKNOWN
     Route: 065
     Dates: start: 20090201
  31. DESMOPRESIN [Concomitant]
     Indication: BLOOD ANTIDIURETIC HORMONE
     Dosage: UNK, UNKNOWN
     Route: 065
     Dates: start: 20090201
  32. AAS [Concomitant]
     Indication: CARDIAC DISORDER
     Dosage: 150 MG, DAILY (1/D)
     Route: 065
     Dates: start: 20090201

REACTIONS (2)
  - BRAIN HERNIATION [None]
  - INTRAVENTRICULAR HAEMORRHAGE [None]
